FAERS Safety Report 5849914-6 (Version None)
Quarter: 2008Q3

REPORT INFORMATION
  Report Type: 
  Country: None (occurrence: None)
  Receive Date: 20080819
  Receipt Date: 20080813
  Transmission Date: 20090109
  Serious: Yes (Other)
  Sender: FDA-Public Use
  Company Number: US-ASTRAZENECA-2008UW16063

PATIENT
  Age: 67 Year
  Sex: Female
  Weight: 104.3 kg

DRUGS (9)
  1. ARIMIDEX [Suspect]
     Indication: BREAST CANCER
     Route: 048
  2. DIOVAN [Concomitant]
  3. SPIROLACTONE [Concomitant]
  4. FUROSEMIDE [Concomitant]
  5. VYTORIN [Concomitant]
  6. ASPIRIN [Concomitant]
  7. FOSAMAX [Concomitant]
  8. EFFEXOR [Concomitant]
  9. CALCIUM [Concomitant]

REACTIONS (5)
  - BODY HEIGHT DECREASED [None]
  - COLD SWEAT [None]
  - HOT FLUSH [None]
  - PARAESTHESIA [None]
  - SURGERY [None]
